FAERS Safety Report 5575231-8 (Version None)
Quarter: 2007Q4

REPORT INFORMATION
  Report Type: 
  Country: None (occurrence: None)
  Receive Date: 20071227
  Receipt Date: 20071218
  Transmission Date: 20080405
  Serious: Yes (Other)
  Sender: FDA-Public Use
  Company Number: US-PFIZER INC-2007107362

PATIENT
  Sex: Female
  Weight: 56.7 kg

DRUGS (6)
  1. CHANTIX [Suspect]
     Indication: SMOKING CESSATION THERAPY
  2. KLOR-CON [Concomitant]
     Indication: GITELMAN'S SYNDROME
  3. POTASSIUM CHLORIDE [Concomitant]
  4. CALCIUM [Concomitant]
     Indication: GITELMAN'S SYNDROME
  5. ETHINYL ESTRADIOL TAB [Concomitant]
  6. NORGESTIMATE [Concomitant]

REACTIONS (6)
  - DIARRHOEA [None]
  - FATIGUE [None]
  - LETHARGY [None]
  - NAUSEA [None]
  - PERFORMANCE STATUS DECREASED [None]
  - SOMNOLENCE [None]
